FAERS Safety Report 21636688 (Version 1)
Quarter: 2022Q4

REPORT INFORMATION
  Report Type: Report from Study
  Country: US (occurrence: US)
  Receive Date: 20221124
  Receipt Date: 20221124
  Transmission Date: 20230112
  Serious: No
  Sender: FDA-Public Use
  Company Number: US-ABBVIE-4159098

PATIENT
  Sex: Male

DRUGS (2)
  1. HUMIRA [Suspect]
     Active Substance: ADALIMUMAB
     Indication: Colitis ulcerative
     Dosage: FORM STRENGTH: 40 MG
     Route: 058
     Dates: start: 202205
  2. HUMIRA [Suspect]
     Active Substance: ADALIMUMAB
     Dosage: 40MG ON DAY 29, FORM STRENGTH: 40 MG
     Route: 058

REACTIONS (6)
  - Arthralgia [Unknown]
  - Off label use [Unknown]
  - Insomnia [Unknown]
  - Anxiety [Unknown]
  - Asthenia [Unknown]
  - Depressed mood [Unknown]
